FAERS Safety Report 15689734 (Version 5)
Quarter: 2019Q3

REPORT INFORMATION
  Report Type: Report from Study
  Country: US (occurrence: US)
  Receive Date: 20181205
  Receipt Date: 20190716
  Transmission Date: 20191004
  Serious: Yes (Hospitalization)
  Sender: FDA-Public Use
  Company Number: US-ACTELION-A-US2017-153495

PATIENT
  Age: 62 Year
  Sex: Female
  Weight: 58.5 kg

DRUGS (7)
  1. UPTRAVI [Suspect]
     Active Substance: SELEXIPAG
     Dosage: 800 MCG, BID
     Route: 048
  2. ADEMPAS [Concomitant]
     Active Substance: RIOCIGUAT
  3. OPSUMIT [Suspect]
     Active Substance: MACITENTAN
     Indication: PULMONARY ARTERIAL HYPERTENSION
     Dosage: 10 MG, QD
     Route: 048
  4. UPTRAVI [Suspect]
     Active Substance: SELEXIPAG
     Indication: PULMONARY ARTERIAL HYPERTENSION
     Dosage: 1000 MCG, UNK
     Route: 048
  5. REMODULIN [Concomitant]
     Active Substance: TREPROSTINIL
  6. OPSUMIT [Suspect]
     Active Substance: MACITENTAN
     Dosage: 10 MG, QD
     Route: 048
  7. UPTRAVI [Suspect]
     Active Substance: SELEXIPAG
     Dosage: 600 MCG, BID
     Route: 048

REACTIONS (14)
  - Nausea [Not Recovered/Not Resolved]
  - Headache [Recovered/Resolved]
  - Abdominal pain upper [Unknown]
  - Therapy change [Unknown]
  - Dizziness [Unknown]
  - Right ventricular dilatation [Unknown]
  - Vomiting [Recovered/Resolved]
  - Abdominal discomfort [Unknown]
  - Therapy non-responder [Unknown]
  - Ventricular hypokinesia [Unknown]
  - Diarrhoea [Recovered/Resolved]
  - Back pain [Unknown]
  - Musculoskeletal pain [Unknown]
  - Gastric ulcer [Unknown]

NARRATIVE: CASE EVENT DATE: 20170522
